FAERS Safety Report 21509972 (Version 1)
Quarter: 2022Q4

REPORT INFORMATION
  Report Type: Spontaneous
  Country: US (occurrence: US)
  Receive Date: 20221026
  Receipt Date: 20221026
  Transmission Date: 20230113
  Serious: Yes (Other)
  Sender: FDA-Public Use
  Company Number: US-AMGEN-USASP2022175979

PATIENT
  Age: 76 Year
  Sex: Female

DRUGS (3)
  1. REPATHA [Suspect]
     Active Substance: EVOLOCUMAB
     Indication: Blood cholesterol increased
     Dosage: 140 MILLIGRAM, Q2WK
     Route: 065
     Dates: start: 20220913
  2. Flue [Concomitant]
     Dosage: UNK
     Dates: start: 20221005
  3. COVID-19 vaccine [Concomitant]
     Dosage: UNK
     Dates: start: 20220929

REACTIONS (4)
  - Cataract operation [Unknown]
  - Throat irritation [Unknown]
  - Rhinorrhoea [Unknown]
  - Urticaria [Unknown]

NARRATIVE: CASE EVENT DATE: 20220901
